FAERS Safety Report 4442005-0 (Version None)
Quarter: 2004Q3

REPORT INFORMATION
  Report Type: 
  Country: None (occurrence: None)
  Receive Date: 20040901
  Receipt Date: 20040824
  Transmission Date: 20050211
  Serious: Yes (Hospitalization, Other)
  Sender: FDA-Public Use
  Company Number: FRWYE002226AUG04

PATIENT
  Age: 75 Year
  Sex: Female

DRUGS (5)
  1. OXAZEPAM [Suspect]
     Dosage: 75 MG 1X PER 1 DAY
     Route: 048
     Dates: end: 20040329
  2. EFFERALGAN CODEINE (PARACETAMOL/CODEINE PHOSPHATE, , 0) [Suspect]
     Route: 048
     Dates: end: 20040329
  3. LEXOMIL (BROMAZEPAM, , 0) [Suspect]
     Route: 048
     Dates: end: 20040329
  4. ZOLPIDEM TARTRATE [Suspect]
     Route: 048
     Dates: end: 20040329
  5. FORLAX (MACROGOL) [Concomitant]

REACTIONS (3)
  - EXTRAPYRAMIDAL DISORDER [None]
  - FALL [None]
  - WEIGHT DECREASED [None]
